FAERS Safety Report 14894663 (Version 3)
Quarter: 2018Q3

REPORT INFORMATION
  Report Type: Spontaneous
  Country: US (occurrence: US)
  Receive Date: 20180515
  Receipt Date: 20180919
  Transmission Date: 20181010
  Serious: Yes (Other)
  Sender: FDA-Public Use
  Company Number: PHEH2018US018570

PATIENT
  Sex: Female

DRUGS (1)
  1. TASIGNA [Suspect]
     Active Substance: NILOTINIB
     Indication: CHRONIC MYELOID LEUKAEMIA
     Dosage: 200 MG, QD
     Route: 048
     Dates: start: 201406

REACTIONS (10)
  - Rhinorrhoea [Unknown]
  - Sneezing [Unknown]
  - Gait disturbance [Unknown]
  - Nerve compression [Unknown]
  - Head discomfort [Unknown]
  - Limb discomfort [Unknown]
  - Constipation [Unknown]
  - Pulmonary congestion [Unknown]
  - Muscle spasms [Unknown]
  - Pain in extremity [Unknown]
